FAERS Safety Report 9995362 (Version 1)
Quarter: 2014Q1

REPORT INFORMATION
  Report Type: Spontaneous
  Country: US (occurrence: None)
  Receive Date: 20140214
  Receipt Date: 20140214
  Transmission Date: 20141002
  Serious: Yes (Other)
  Sender: FDA-Public Use
  Company Number: US-013556

PATIENT
  Age: 55 Year
  Sex: Female

DRUGS (4)
  1. PICOLAX [Suspect]
     Indication: BOWEL PREPARATION
     Dosage: FIRST DOSE AT 5:00 PM
     Route: 048
     Dates: start: 20131105, end: 20131105
  2. SYNTHROID [Concomitant]
  3. CALCIUM [Concomitant]
  4. VITAMIN D SUPPORT [Concomitant]

REACTIONS (1)
  - Treatment noncompliance [None]
